FAERS Safety Report 15592338 (Version 11)
Quarter: 2021Q2

REPORT INFORMATION
  Report Type: Report from Study
  Country: BE (occurrence: BE)
  Receive Date: 20181106
  Receipt Date: 20210428
  Transmission Date: 20210716
  Serious: Yes (Life-Threatening, Hospitalization)
  Sender: FDA-Public Use
  Company Number: BE-PFIZER INC-2018430549

PATIENT
  Age: 72 Year
  Sex: Male
  Weight: 70 kg

DRUGS (11)
  1. DOXORUBICIN HCL [Suspect]
     Active Substance: DOXORUBICIN HYDROCHLORIDE
     Indication: BLADDER CANCER
     Dosage: 55.5 MG, CYCLIC (EVERY TWO WEEKS)
     Route: 042
     Dates: start: 20180904, end: 20181002
  2. VINBLASTINE [Suspect]
     Active Substance: VINBLASTINE
     Indication: BLADDER CANCER
     Dosage: 5.55 MG,  CYCLIC (EVERY TWO WEEKS)
     Route: 042
     Dates: start: 20180904, end: 20181002
  3. LIPEGFILGRASTIM [Concomitant]
     Active Substance: LIPEGFILGRASTIM
     Indication: PROPHYLAXIS
     Dosage: 6 MG, UNK
     Route: 058
     Dates: start: 20181002
  4. TEMESTA [LORAZEPAM] [Concomitant]
     Active Substance: LORAZEPAM
     Indication: INSOMNIA
     Dosage: 1 MG, UNK
     Dates: start: 20180904
  5. BRETARIS [Concomitant]
     Active Substance: ACLIDINIUM BROMIDE
     Dosage: UNK UNK, 2X/DAY(1 PUFF)/(ONCE IN 0.5 DAY)
     Route: 061
     Dates: start: 2010
  6. MINITRAN [Concomitant]
     Active Substance: NITROGLYCERIN
     Indication: PROPHYLAXIS
     Dosage: 5 MG, CYCLIC (ONCE EVERY 0.2 DAY)
     Dates: start: 2018
  7. METHOTREXATE SODIUM. [Suspect]
     Active Substance: METHOTREXATE SODIUM
     Indication: BLADDER CANCER
     Dosage: 55.5 MG, CYCLIC (EVERY TWO WEEKS)
     Route: 042
     Dates: start: 20180903, end: 20181001
  8. CISPLATIN. [Suspect]
     Active Substance: CISPLATIN
     Indication: BLADDER CANCER
     Dosage: 129 MG, CYCLIC (EVERY TWO WEEKS)
     Route: 042
     Dates: start: 20180904, end: 20181001
  9. OMEPRAZOLE. [Concomitant]
     Active Substance: OMEPRAZOLE
     Indication: ABDOMINAL PAIN UPPER
     Dosage: 20 MG, UNK
     Dates: start: 20180904
  10. COVERSYL [PERINDOPRIL ERBUMINE] [Concomitant]
     Active Substance: PERINDOPRIL ERBUMINE
     Indication: HYPERTENSION
     Dosage: 5 MG, UNK
     Route: 048
     Dates: start: 2008
  11. AVELUMAB [Suspect]
     Active Substance: AVELUMAB
     Indication: BLADDER CANCER
     Dosage: 720 MG, CYCLIC (EVERY TWO WEEKS)
     Route: 042
     Dates: start: 20180904, end: 20181002

REACTIONS (1)
  - Sepsis [Recovered/Resolved]

NARRATIVE: CASE EVENT DATE: 20181010
